FAERS Safety Report 6527312-X (Version None)
Quarter: 2010Q1

REPORT INFORMATION
  Report Type: 
  Country: None (occurrence: None)
  Receive Date: 20100105
  Receipt Date: 20091230
  Transmission Date: 20100710
  Serious: Yes (Hospitalization)
  Sender: FDA-Public Use
  Company Number: GXKR2009DE13439

PATIENT
  Age: 29 Year

DRUGS (4)
  1. AMITRIPTYLINE HCL [Suspect]
     Dosage: 400 MG, QD
     Route: 065
  2. ELONTRIL [Interacting]
     Dosage: 150 MG, QD
     Route: 065
  3. IMAP [Interacting]
     Dosage: 4 MG, QW
     Route: 030
  4. ANDROCUR [Suspect]
     Route: 065

REACTIONS (4)
  - DRUG INTERACTION [None]
  - GRAND MAL CONVULSION [None]
  - POSTICTAL STATE [None]
  - TONGUE BITING [None]
